FAERS Safety Report 7641172-5 (Version None)
Quarter: 2011Q3

REPORT INFORMATION
  Report Type: 
  Country: None (occurrence: None)
  Receive Date: 20110728
  Receipt Date: 20110717
  Transmission Date: 20111222
  Serious: Yes (Other)
  Sender: FDA-Public Use
  Company Number: PHHY2011IL64247

PATIENT
  Age: 57 Year
  Sex: Male

DRUGS (2)
  1. SANDOSTATIN LAR [Suspect]
     Indication: CARCINOID TUMOUR
     Dosage: 30 MG, EVERY 28 DAYS
     Dates: start: 20110106
  2. SANDOSTATIN LAR [Suspect]
     Dosage: 30 MG, EVERY 28 DAYS
     Dates: start: 20110703

REACTIONS (1)
  - INTERVERTEBRAL DISC DISORDER [None]
